FAERS Safety Report 8721935 (Version 2)
Quarter: 2013Q1

REPORT INFORMATION
  Report Type: Spontaneous
  Country: AU (occurrence: AU)
  Receive Date: 20120814
  Receipt Date: 20130201
  Transmission Date: 20140127
  Serious: Yes (Disabling)
  Sender: FDA-Public Use
  Company Number: PHHY2012AU011805

PATIENT
  Sex: Female

DRUGS (1)
  1. FEMARA [Suspect]
     Dates: start: 201107, end: 201112

REACTIONS (5)
  - Abasia [Recovered/Resolved]
  - Arthralgia [Recovered/Resolved]
  - Musculoskeletal stiffness [Recovered/Resolved]
  - Pain in extremity [Recovered/Resolved]
  - Musculoskeletal pain [Recovered/Resolved]
